FAERS Safety Report 4504319-5 (Version None)
Quarter: 2004Q4

REPORT INFORMATION
  Report Type: 
  Country: None (occurrence: None)
  Receive Date: 20041115
  Receipt Date: 20041102
  Transmission Date: 20050328
  Serious: Yes (Hospitalization)
  Sender: FDA-Public Use
  Company Number: HQWYE652408OCT04

PATIENT
  Age: 63 Year
  Sex: Male
  Weight: 113.95 kg

DRUGS (4)
  1. RAPAMUNE [Suspect]
     Indication: IMMUNOSUPPRESSANT DRUG THERAPY
     Dosage: 4 MG 1X PER 1 DAY, ORAL
     Route: 048
     Dates: start: 20040710
  2. RAPAMUNE [Suspect]
     Indication: PROPHYLAXIS AGAINST TRANSPLANT REJECTION
     Dosage: 4 MG 1X PER 1 DAY, ORAL
     Route: 048
     Dates: start: 20040710
  3. CELLCEPT [Concomitant]
  4. PREDNISONE [Concomitant]

REACTIONS (10)
  - ATELECTASIS [None]
  - EJECTION FRACTION DECREASED [None]
  - KIDNEY TRANSPLANT REJECTION [None]
  - PLEURAL EFFUSION [None]
  - PULMONARY EMBOLISM [None]
  - PULMONARY HYPERTENSION [None]
  - RENAL FAILURE ACUTE [None]
  - SLEEP APNOEA SYNDROME [None]
  - VENTRICULAR TACHYCARDIA [None]
  - WEIGHT DECREASED [None]
